FAERS Safety Report 26025404 (Version 1)
Quarter: 2025Q4

REPORT INFORMATION
  Report Type: Spontaneous
  Country: EU (occurrence: EU)
  Receive Date: 20251111
  Receipt Date: 20251111
  Transmission Date: 20260117
  Serious: Yes (Life-Threatening, Other)
  Sender: AUROBINDO
  Company Number: EU-AFSSAPS-202525001676

PATIENT
  Age: 12 Year
  Sex: Female
  Weight: 64.1 kg

DRUGS (1)
  1. ACETAMINOPHEN [Suspect]
     Active Substance: ACETAMINOPHEN
     Indication: Product used for unknown indication
     Dosage: 20 GRAM, 1 X TOTAL
     Route: 065
     Dates: start: 20250813, end: 20250813

REACTIONS (4)
  - Poisoning deliberate [Not Recovered/Not Resolved]
  - Hepatic failure [Not Recovered/Not Resolved]
  - Vomiting [Recovered/Resolved]
  - Intentional overdose [Not Recovered/Not Resolved]

NARRATIVE: CASE EVENT DATE: 20250813
